FAERS Safety Report 15594541 (Version 2)
Quarter: 2018Q4

REPORT INFORMATION
  Report Type: Report from Study
  Country: CA (occurrence: CA)
  Receive Date: 20181106
  Receipt Date: 20181113
  Transmission Date: 20190205
  Serious: Yes (Other)
  Sender: FDA-Public Use
  Company Number: CA-GILEAD-2018-0368173

PATIENT
  Age: 40 Year
  Sex: Female

DRUGS (1)
  1. SOFOSBUVIR W/VELPATASVIR [Suspect]
     Active Substance: SOFOSBUVIR\VELPATASVIR
     Indication: CHRONIC HEPATITIS C
     Dosage: 1 DF, UNK
     Route: 048
     Dates: start: 20181006

REACTIONS (18)
  - Increased appetite [Unknown]
  - Stress [Unknown]
  - Headache [Not Recovered/Not Resolved]
  - Dental caries [Not Recovered/Not Resolved]
  - Pain [Unknown]
  - Bipolar disorder [Not Recovered/Not Resolved]
  - Agitation [Not Recovered/Not Resolved]
  - Accidental overdose [Recovered/Resolved]
  - Skin infection [Not Recovered/Not Resolved]
  - Nervousness [Unknown]
  - Abscess oral [Not Recovered/Not Resolved]
  - Nasopharyngitis [Recovering/Resolving]
  - Psoriasis [Not Recovered/Not Resolved]
  - Osteomyelitis [Not Recovered/Not Resolved]
  - Mania [Not Recovered/Not Resolved]
  - Dyspepsia [Not Recovered/Not Resolved]
  - Hunger [Unknown]
  - Vomiting [Recovered/Resolved]

NARRATIVE: CASE EVENT DATE: 201810
